FAERS Safety Report 13171694 (Version 1)
Quarter: 2017Q1

REPORT INFORMATION
  Report Type: Other
  Country: US (occurrence: US)
  Receive Date: 20170201
  Receipt Date: 20170201
  Transmission Date: 20170428
  Serious: Yes (Death)
  Sender: FDA-Public Use
  Company Number: US-HETERO LABS LTD-1062605

PATIENT
  Age: 5 Decade
  Sex: Male

DRUGS (2)
  1. SIMVASTATIN. [Suspect]
     Active Substance: SIMVASTATIN
     Indication: ACQUIRED MIXED HYPERLIPIDAEMIA
     Route: 065
  2. TEMAZEPAM. [Concomitant]
     Active Substance: TEMAZEPAM

REACTIONS (11)
  - Non-alcoholic fatty liver [Unknown]
  - Adjustment disorder [Unknown]
  - Dissociation [Unknown]
  - Anxiety [Unknown]
  - Insomnia [Unknown]
  - Completed suicide [Fatal]
  - Impatience [Unknown]
  - Depression [Unknown]
  - Irritability [Unknown]
  - Fatigue [Unknown]
  - Social avoidant behaviour [Unknown]
